FAERS Safety Report 17272613 (Version 1)
Quarter: 2020Q1

REPORT INFORMATION
  Report Type: Report from Study
  Country: US (occurrence: US)
  Receive Date: 20200115
  Receipt Date: 20200115
  Transmission Date: 20200409
  Serious: No
  Sender: FDA-Public Use
  Company Number: US-BEH-2020111319

PATIENT
  Age: 62 Year
  Sex: Female

DRUGS (2)
  1. HAEGARDA [Suspect]
     Active Substance: HUMAN C1-ESTERASE INHIBITOR
     Indication: PROPHYLAXIS
  2. HAEGARDA [Suspect]
     Active Substance: HUMAN C1-ESTERASE INHIBITOR
     Indication: HEREDITARY ANGIOEDEMA
     Dosage: 6000 EVERY 3 TO 4 DAYS
     Route: 042
     Dates: start: 20170919, end: 20191031

REACTIONS (4)
  - No adverse event [Unknown]
  - Incorrect route of product administration [Unknown]
  - Administration site pain [Unknown]
  - Liquid product physical issue [Unknown]
